FAERS Safety Report 7779035-7 (Version None)
Quarter: 2011Q3

REPORT INFORMATION
  Report Type: 
  Country: None (occurrence: None)
  Receive Date: 20110926
  Receipt Date: 20110921
  Transmission Date: 20111222
  Serious: Yes (Other)
  Sender: FDA-Public Use
  Company Number: JP-ABBOTT-11P-087-0849424-00

PATIENT
  Age: 68 Year
  Sex: Male
  Weight: 41 kg

DRUGS (16)
  1. CLARITHROMYCIN [Suspect]
  2. RIFABUTIN [Suspect]
     Indication: MYCOBACTERIUM AVIUM COMPLEX INFECTION
     Dates: start: 20100101
  3. ETHAMBUTOL HYDROCHLORIDE [Concomitant]
     Indication: MYCOBACTERIUM AVIUM COMPLEX INFECTION
  4. LEVOFLOXACIN [Concomitant]
     Indication: ATYPICAL MYCOBACTERIAL INFECTION
  5. AZITHROMYCIN [Concomitant]
     Indication: MYCOBACTERIUM AVIUM COMPLEX INFECTION
     Dates: start: 20100101
  6. CLARITHROMYCIN [Suspect]
     Indication: MYCOBACTERIUM AVIUM COMPLEX INFECTION
     Dates: start: 20070101, end: 20100101
  7. RIFABUTIN [Suspect]
     Indication: ATYPICAL MYCOBACTERIAL INFECTION
  8. RIFAMPICIN [Suspect]
     Indication: MYCOBACTERIUM AVIUM COMPLEX INFECTION
     Dates: start: 20050101
  9. CLARITHROMYCIN [Suspect]
     Indication: ATYPICAL MYCOBACTERIAL INFECTION
     Dates: start: 20050101
  10. LEVOFLOXACIN [Concomitant]
     Indication: MYCOBACTERIUM AVIUM COMPLEX INFECTION
     Dates: start: 20070101
  11. AZITHROMYCIN [Concomitant]
     Indication: ATYPICAL MYCOBACTERIAL INFECTION
  12. ITRACONAZOLE [Suspect]
     Indication: BRONCHOPULMONARY ASPERGILLOSIS
     Route: 048
  13. RIFAMPICIN [Suspect]
     Indication: ATYPICAL MYCOBACTERIAL INFECTION
  14. ETHAMBUTOL HYDROCHLORIDE [Concomitant]
     Indication: ATYPICAL MYCOBACTERIAL INFECTION
  15. RIFAMPICIN [Concomitant]
  16. RIFAMPICIN [Concomitant]
     Dates: start: 20070101

REACTIONS (6)
  - DIARRHOEA [None]
  - DRUG INTERACTION [None]
  - LUNG INFILTRATION [None]
  - ASPERGILLOMA [None]
  - PULMONARY CAVITATION [None]
  - WEIGHT DECREASED [None]
